FAERS Safety Report 9922265 (Version 1)
Quarter: 2014Q1

REPORT INFORMATION
  Report Type: Spontaneous
  Country: US (occurrence: US)
  Receive Date: 20140225
  Receipt Date: 20140225
  Transmission Date: 20141002
  Serious: Yes (Hospitalization)
  Sender: FDA-Public Use
  Company Number: US-GILEAD-2014-0095196

PATIENT
  Sex: Female

DRUGS (2)
  1. LETAIRIS [Suspect]
     Indication: PRODUCT USED FOR UNKNOWN INDICATION
     Dosage: 10 MG, QD
     Route: 065
     Dates: start: 20100930
  2. VENTAVIS [Concomitant]

REACTIONS (5)
  - Blood potassium decreased [Unknown]
  - Chest pain [Unknown]
  - Myalgia [Unknown]
  - Syncope [Unknown]
  - Dyspnoea [Unknown]
